FAERS Safety Report 9097059 (Version 1)
Quarter: 2013Q1

REPORT INFORMATION
  Report Type: Spontaneous
  Country: CA (occurrence: None)
  Receive Date: 20130125
  Receipt Date: 20130125
  Transmission Date: 20140127
  Serious: Yes (Other)
  Sender: FDA-Public Use
  Company Number: 2013P1000926

PATIENT
  Age: 33 Year
  Sex: Female

DRUGS (7)
  1. PREDNISONE [Suspect]
     Indication: ASTHMA
     Dosage: UNKNOWN  -  UNKNOWN
     Route: 048
  2. PREDNISONE [Suspect]
     Indication: SKIN TEST
     Dosage: UNKNOWN  -  UNKNOWN
     Route: 048
  3. SOLU-MEDROL [Suspect]
     Indication: ASTHMA
     Dosage: UNKNOWN  -  UNKNOWN
     Route: 042
  4. SOLU-MEDROL [Suspect]
     Indication: SKIN TEST
     Dosage: UNKNOWN  -  UNKNOWN
     Route: 042
  5. SOLU-CORTEF [Suspect]
     Indication: ASTHMA
     Dosage: UNKNOWN - UNKNOWN
     Route: 042
  6. SOLU-CORTEF [Suspect]
     Indication: SKIN TEST
     Dosage: UNKNOWN - UNKNOWN
     Route: 042
  7. PULMICORT (BUDESONIDE) [Concomitant]

REACTIONS (6)
  - Eczema [None]
  - Burning sensation [None]
  - Pruritus [None]
  - Headache [None]
  - Type I hypersensitivity [None]
  - Type IV hypersensitivity reaction [None]
